FAERS Safety Report 12982114 (Version 2)
Quarter: 2016Q4

REPORT INFORMATION
  Report Type: Spontaneous
  Country: CA (occurrence: CA)
  Receive Date: 20161129
  Receipt Date: 20161230
  Transmission Date: 20170207
  Serious: Yes (Other)
  Sender: FDA-Public Use
  Company Number: CA-ROCHE-1859522

PATIENT
  Age: 56 Year
  Sex: Female
  Weight: 116 kg

DRUGS (5)
  1. RITUXAN [Suspect]
     Active Substance: RITUXIMAB
     Indication: RHEUMATOID ARTHRITIS
     Dosage: RITUXAN: 1000MG INTRAVENOUS WEEK 0 + 2, FROM 02JUNE2015 TO 31OCTOBER2015; LOSS OF EFFICACY
     Route: 042
     Dates: start: 20150602, end: 20151031
  2. ORENCIA [Concomitant]
     Active Substance: ABATACEPT
     Route: 042
     Dates: start: 20140918, end: 20150317
  3. METHOTREXATE SODIUM. [Suspect]
     Active Substance: METHOTREXATE SODIUM
     Indication: RHEUMATOID ARTHRITIS
     Route: 065
     Dates: start: 20130522, end: 20141028
  4. SULFASALAZINE. [Suspect]
     Active Substance: SULFASALAZINE
     Indication: RHEUMATOID ARTHRITIS
     Route: 065
     Dates: start: 20140130, end: 20140220
  5. SIMPONI [Concomitant]
     Active Substance: GOLIMUMAB
     Route: 042
     Dates: start: 201304, end: 201406

REACTIONS (10)
  - Joint swelling [Unknown]
  - Hepatosplenomegaly [Unknown]
  - Treatment failure [Unknown]
  - Peripheral swelling [Unknown]
  - Biliary cirrhosis [Unknown]
  - Pain in extremity [Unknown]
  - Neck pain [Unknown]
  - Hepatic enzyme increased [Unknown]
  - Arthralgia [Unknown]
  - Drug intolerance [Unknown]
